FAERS Safety Report 4982195-4 (Version None)
Quarter: 2006Q2

REPORT INFORMATION
  Report Type: 
  Country: None (occurrence: None)
  Receive Date: 20060419
  Receipt Date: 20060328
  Transmission Date: 20061013
  Serious: Yes (Other)
  Sender: FDA-Public Use
  Company Number: US200603006847

PATIENT
  Sex: Male

DRUGS (4)
  1. HUMULIN L [Suspect]
     Indication: DIABETES MELLITUS
  2. HUMULIN R [Suspect]
     Indication: DIABETES MELLITUS
  3. NOVOLIN U (INSULIN ZINC SUSPENSION) [Concomitant]
  4. LANTUS [Concomitant]

REACTIONS (5)
  - ANAPHYLACTIC SHOCK [None]
  - ANGER [None]
  - AORTIC VALVE REPLACEMENT [None]
  - DRUG HYPERSENSITIVITY [None]
  - HYPERSENSITIVITY [None]
